FAERS Safety Report 6252010-X (Version None)
Quarter: 2009Q2

REPORT INFORMATION
  Report Type: 
  Country: None (occurrence: None)
  Receive Date: 20090630
  Receipt Date: 20040528
  Transmission Date: 20091009
  Serious: Yes (Hospitalization)
  Sender: FDA-Public Use
  Company Number: US-ROCHE-638456

PATIENT
  Sex: Male

DRUGS (7)
  1. ENFUVIRTIDE [Suspect]
     Route: 065
     Dates: start: 20030722, end: 20080326
  2. KALETRA [Concomitant]
     Dates: start: 20010116, end: 20080326
  3. VIDEX [Concomitant]
     Dates: start: 20010116, end: 20080326
  4. VIREAD [Concomitant]
     Dates: start: 20011116, end: 20080326
  5. REYATAZ [Concomitant]
     Dates: start: 20031028, end: 20040401
  6. DIFLUCAN [Concomitant]
     Dates: start: 19990503, end: 20080326
  7. KEFLEX [Concomitant]
     Dates: start: 20040224, end: 20040303

REACTIONS (1)
  - HIP FRACTURE [None]
